FAERS Safety Report 17212062 (Version 2)
Quarter: 2020Q1

REPORT INFORMATION
  Report Type: Not Available
  Country: US (occurrence: US)
  Receive Date: 20191230
  Receipt Date: 20200107
  Transmission Date: 20200409
  Serious: No
  Sender: FDA-Public Use
  Company Number: US-NEUROCRINE BIOSCIENCES INC.-2019NBI03925

PATIENT
  Sex: Female

DRUGS (11)
  1. ZYPREXA [Concomitant]
     Active Substance: OLANZAPINE
  2. WARFARIN [Concomitant]
     Active Substance: WARFARIN
  3. AMIODARONE [Concomitant]
     Active Substance: AMIODARONE
  4. INGREZZA [Suspect]
     Active Substance: VALBENAZINE
     Indication: TARDIVE DYSKINESIA
  5. FOLIC ACID. [Concomitant]
     Active Substance: FOLIC ACID
  6. ATORVASTATIN [Concomitant]
     Active Substance: ATORVASTATIN
  7. TRIAMTERENE. [Concomitant]
     Active Substance: TRIAMTERENE
  8. DEPAKOTE [Concomitant]
     Active Substance: DIVALPROEX SODIUM
  9. MELATONIN [Concomitant]
     Active Substance: MELATONIN
  10. INGREZZA [Suspect]
     Active Substance: VALBENAZINE
     Route: 048
  11. ASPIRIN. [Concomitant]
     Active Substance: ASPIRIN

REACTIONS (2)
  - Tremor [Unknown]
  - Fall [Unknown]
